FAERS Safety Report 9812306 (Version 1)
Quarter: 2014Q1

REPORT INFORMATION
  Report Type: Spontaneous
  Country: US (occurrence: US)
  Receive Date: 20140113
  Receipt Date: 20140113
  Transmission Date: 20141002
  Serious: No
  Sender: FDA-Public Use
  Company Number: US-009507513-1401USA002194

PATIENT
  Age: 23 Year
  Sex: Female
  Weight: 65.76 kg

DRUGS (2)
  1. NEXPLANON [Suspect]
     Indication: CONTRACEPTION
     Dosage: THERAPY ROUTE: INSERTED ON LEFT ARM
     Route: 059
     Dates: start: 20131210
  2. PHENYLEPHRINE HCL [Concomitant]
     Indication: NASAL CONGESTION

REACTIONS (1)
  - Implant site mass [Unknown]
